FAERS Safety Report 5105870-X (Version None)
Quarter: 2006Q3

REPORT INFORMATION
  Report Type: 
  Country: None (occurrence: None)
  Receive Date: 20060915
  Receipt Date: 20060828
  Transmission Date: 20061208
  Serious: Yes (Other)
  Sender: FDA-Public Use
  Company Number: JP-JPN-A200603386

PATIENT
  Age: 54 Year
  Sex: Male

DRUGS (11)
  1. FLUNASE (JAPAN) [Suspect]
     Indication: NASAL CONGESTION
     Route: 045
     Dates: start: 20060824
  2. NEUTROPIN [Concomitant]
     Dosage: 4UNIT PER DAY
     Route: 048
  3. ULGUT [Concomitant]
     Dosage: 2UNIT PER DAY
     Route: 048
  4. GOSHA-JINKI-GAN [Concomitant]
     Dosage: 5G PER DAY
     Route: 048
  5. CYANOCOBALAMIN [Concomitant]
     Dosage: 3UNIT PER DAY
     Route: 048
  6. CERCINE [Concomitant]
     Dosage: 3UNIT PER DAY
     Route: 048
  7. PAXIL [Concomitant]
     Dosage: 2UNIT PER DAY
     Route: 048
  8. GASTER D [Concomitant]
     Dosage: 2UNIT PER DAY
     Route: 048
  9. DORAL [Concomitant]
     Dosage: 2UNIT PER DAY
     Route: 048
  10. MAGMITT [Concomitant]
     Dosage: 3UNIT PER DAY
     Route: 048
  11. OPALMON [Concomitant]
     Dosage: 3UNIT PER DAY
     Route: 048

REACTIONS (4)
  - COUGH [None]
  - INSOMNIA [None]
  - RESPIRATORY DEPRESSION [None]
  - SENSATION OF FOREIGN BODY [None]
